FAERS Safety Report 6963569-9 (Version None)
Quarter: 2010Q3

REPORT INFORMATION
  Report Type: 
  Country: None (occurrence: None)
  Receive Date: 20100902
  Receipt Date: 20100824
  Transmission Date: 20110219
  Serious: Yes (Disabling, Other)
  Sender: FDA-Public Use
  Company Number: US-BAYER-201031666NA

PATIENT
  Sex: Male

DRUGS (7)
  1. MAGNEVIST [Suspect]
  2. OMNISCAN [Suspect]
     Indication: NUCLEAR MAGNETIC RESONANCE IMAGING ABDOMINAL
     Dates: start: 20040713, end: 20040713
  3. OMNISCAN [Suspect]
     Dates: start: 20041015, end: 20041015
  4. OPTIMARK [Suspect]
  5. PROHANCE [Suspect]
     Indication: NUCLEAR MAGNETIC RESONANCE IMAGING
     Dates: start: 20030703, end: 20030703
  6. PROHANCE [Suspect]
     Dates: start: 20050414, end: 20050414
  7. MULTIHANCE [Suspect]

REACTIONS (8)
  - DEFORMITY [None]
  - EXTREMITY CONTRACTURE [None]
  - FIBROSIS [None]
  - GENERAL PHYSICAL HEALTH DETERIORATION [None]
  - MOBILITY DECREASED [None]
  - NEPHROGENIC SYSTEMIC FIBROSIS [None]
  - PAIN [None]
  - SCAR [None]
